FAERS Safety Report 5025781-8 (Version None)
Quarter: 2006Q2

REPORT INFORMATION
  Report Type: 
  Country: None (occurrence: None)
  Receive Date: 20060609
  Receipt Date: 20060609
  Transmission Date: 20061013
  Serious: Yes (Life-Threatening, Hospitalization)
  Sender: FDA-Public Use
  Company Number: None

PATIENT
  Age: 70 Year
  Sex: Male

DRUGS (1)
  1. ELOXATIN [Suspect]
     Indication: BILE DUCT CANCER STAGE IV
     Dosage: 200MG IV CYCLE 9
     Route: 042
     Dates: start: 20060531

REACTIONS (8)
  - ABDOMINAL DISCOMFORT [None]
  - CARDIAC ARREST [None]
  - CHEST PAIN [None]
  - ERYTHEMA [None]
  - FLUSHING [None]
  - NODAL RHYTHM [None]
  - SHOCK [None]
  - VENTRICULAR TACHYCARDIA [None]
